FAERS Safety Report 5680329-X (Version None)
Quarter: 2008Q1

REPORT INFORMATION
  Report Type: 
  Country: None (occurrence: None)
  Receive Date: 20080326
  Receipt Date: 20080318
  Transmission Date: 20080703
  Serious: Yes (Other)
  Sender: FDA-Public Use
  Company Number: DE-TEVA-167832ISR

PATIENT
  Sex: Female

DRUGS (2)
  1. COPAXONE [Suspect]
     Indication: MULTIPLE SCLEROSIS
     Route: 058
     Dates: start: 19930101
  2. COPAXONE [Suspect]
     Route: 058
     Dates: start: 20070901

REACTIONS (2)
  - ABDOMINAL RIGIDITY [None]
  - UTERINE CANCER [None]
